FAERS Safety Report 5354670-4 (Version None)
Quarter: 2007Q2

REPORT INFORMATION
  Report Type: 
  Country: None (occurrence: None)
  Receive Date: 20070612
  Receipt Date: 20070604
  Transmission Date: 20071010
  Serious: Yes (Death)
  Sender: FDA-Public Use
  Company Number: PL-ROXANE LABORATORIES, INC-2007-DE-03295GD

PATIENT
  Sex: Male

DRUGS (7)
  1. HYDROCORTISONE [Suspect]
     Indication: ACUTE LYMPHOCYTIC LEUKAEMIA RECURRENT
  2. DEXAMETHASONE 0.5MG TAB [Suspect]
     Indication: ACUTE LYMPHOCYTIC LEUKAEMIA RECURRENT
  3. METHOTREXATE [Suspect]
     Indication: ACUTE LYMPHOCYTIC LEUKAEMIA RECURRENT
  4. MERCAPTOPURINE [Suspect]
     Indication: ACUTE LYMPHOCYTIC LEUKAEMIA RECURRENT
  5. ELSPAR [Suspect]
     Indication: ACUTE LYMPHOCYTIC LEUKAEMIA RECURRENT
     Dosage: 1000 IU/ME2
  6. VINCRISTINE [Suspect]
     Indication: ACUTE LYMPHOCYTIC LEUKAEMIA RECURRENT
  7. CYTARABINE [Suspect]
     Indication: ACUTE LYMPHOCYTIC LEUKAEMIA RECURRENT

REACTIONS (3)
  - PSEUDOMONAL SEPSIS [None]
  - PULMONARY EMBOLISM [None]
  - SEPTIC SHOCK [None]
